FAERS Safety Report 13030642 (Version 1)
Quarter: 2016Q4

REPORT INFORMATION
  Report Type: Spontaneous
  Country: FR (occurrence: FR)
  Receive Date: 20161215
  Receipt Date: 20161215
  Transmission Date: 20170207
  Serious: Yes (Other)
  Sender: FDA-Public Use
  Company Number: FR-PFIZER INC-2016569538

PATIENT
  Age: 36 Year
  Sex: Male
  Weight: 88 kg

DRUGS (8)
  1. ZYVOXID [Suspect]
     Active Substance: LINEZOLID
     Indication: DERMO-HYPODERMITIS
     Dosage: UNK
     Route: 048
     Dates: start: 20160506, end: 20160526
  2. DALACINE [Suspect]
     Active Substance: CLINDAMYCIN HYDROCHLORIDE
     Indication: DERMO-HYPODERMITIS
     Dosage: 600 MG, 3X/DAY
     Route: 048
     Dates: start: 20160504, end: 20160506
  3. DOLIPRANE [Concomitant]
     Active Substance: ACETAMINOPHEN
     Dosage: UNK
     Route: 048
     Dates: start: 20160502
  4. ROCEPHINE [Concomitant]
     Active Substance: CEFTRIAXONE SODIUM
     Indication: DERMO-HYPODERMITIS
     Dosage: UNK
     Dates: start: 20160503, end: 20160504
  5. PYOSTACINE [Concomitant]
     Active Substance: PRISTINAMYCIN
     Indication: DERMO-HYPODERMITIS
     Dosage: 2 G, SINGLE
     Dates: start: 20160504, end: 20160504
  6. LEVOFLOXACINE MYLAN [Suspect]
     Active Substance: LEVOFLOXACIN
     Indication: DERMO-HYPODERMITIS
     Dosage: 500 MG, 2X/DAY
     Route: 048
     Dates: start: 20160504, end: 20160508
  7. ACUPAN [Concomitant]
     Active Substance: NEFOPAM HYDROCHLORIDE
     Dosage: UNK
     Dates: start: 20160503
  8. GENTAMICIN. [Concomitant]
     Active Substance: GENTAMICIN
     Indication: DERMO-HYPODERMITIS
     Dosage: UNK
     Dates: start: 20160503, end: 20160504

REACTIONS (3)
  - Rash erythematous [Recovered/Resolved]
  - Toxic skin eruption [Recovered/Resolved]
  - Acute generalised exanthematous pustulosis [Recovered/Resolved]

NARRATIVE: CASE EVENT DATE: 20160506
